FAERS Safety Report 6149741-9 (Version None)
Quarter: 2009Q2

REPORT INFORMATION
  Report Type: 
  Country: None (occurrence: None)
  Receive Date: 20090406
  Receipt Date: 20090327
  Transmission Date: 20091009
  Serious: Yes (Hospitalization)
  Sender: FDA-Public Use
  Company Number: WAES 0710USA02499

PATIENT

DRUGS (32)
  1. CAP VORINOSTAT [Suspect]
     Indication: NON-SMALL CELL LUNG CANCER
     Dosage: 400 MG/DAILY PO
     Route: 048
     Dates: start: 20070927, end: 20071007
  2. CAP VORINOSTAT [Suspect]
     Indication: NON-SMALL CELL LUNG CANCER
     Dosage: 400 MG/DAILY PO
     Route: 048
     Dates: start: 20071106, end: 20071119
  3. CAP VORINOSTAT [Suspect]
     Indication: NON-SMALL CELL LUNG CANCER
     Dosage: 400 MG/DAILY PO
     Route: 048
     Dates: start: 20071127, end: 20071206
  4. CAP VORINOSTAT [Suspect]
     Indication: NON-SMALL CELL LUNG CANCER
     Dosage: 400 MG/DAILY PO
     Route: 048
     Dates: start: 20071218, end: 20071231
  5. CARBOPLATIN [Suspect]
     Indication: NON-SMALL CELL LUNG CANCER
     Dosage: 456 MG/1X IV
     Route: 042
     Dates: start: 20071001, end: 20071007
  6. CARBOPLATIN [Suspect]
     Indication: NON-SMALL CELL LUNG CANCER
     Dosage: 510 MG/1X IV
     Route: 042
     Dates: start: 20071006, end: 20071106
  7. CARBOPLATIN [Suspect]
     Indication: NON-SMALL CELL LUNG CANCER
     Dosage: 430 MG/1X IV
     Route: 042
     Dates: start: 20071127, end: 20071127
  8. CARBOPLATIN [Suspect]
     Indication: NON-SMALL CELL LUNG CANCER
     Dosage: 475 MG/1X IV
     Route: 042
     Dates: start: 20071218, end: 20071218
  9. PACLITAXEL [Suspect]
     Indication: NON-SMALL CELL LUNG CANCER
     Dosage: 340 MG/1X IV
     Route: 042
     Dates: start: 20071001, end: 20071001
  10. PACLITAXEL [Suspect]
     Indication: NON-SMALL CELL LUNG CANCER
     Dosage: 278 MG/1X IV
     Route: 042
     Dates: start: 20071106, end: 20071106
  11. PACLITAXEL [Suspect]
     Indication: NON-SMALL CELL LUNG CANCER
     Dosage: 241 MG/1X IV
     Route: 042
     Dates: start: 20071127, end: 20071127
  12. PACLITAXEL [Suspect]
     Indication: NON-SMALL CELL LUNG CANCER
     Dosage: 246 MG/1X IV
     Route: 042
     Dates: start: 20071218, end: 20071218
  13. ATROVENT [Concomitant]
  14. CIPRALEX [Concomitant]
  15. DECORTIN H [Concomitant]
  16. FORTECORTIN [Concomitant]
  17. KALINOR [Concomitant]
  18. OPTIPECT [Concomitant]
  19. PANTOZOL [Concomitant]
  20. SIMVAHEXAL [Concomitant]
  21. SPIRIVA [Concomitant]
  22. STAURODORM [Concomitant]
  23. SULTANOL [Concomitant]
  24. CLEMASTINE FUMARATE [Concomitant]
  25. VIANI [Concomitant]
  26. XIMOVAN [Concomitant]
  27. ZOFRAN [Concomitant]
  28. THERAPY UNSPECIFIED [Concomitant]
  29. CARBIMAZOLE [Concomitant]
  30. MAGNESIUM SULFATE [Concomitant]
  31. RANITIDINE [Concomitant]
  32. SODIUM CHLORIDE [Concomitant]

REACTIONS (7)
  - ANOREXIA [None]
  - ASTHENIA [None]
  - DIARRHOEA [None]
  - FEBRILE NEUTROPENIA [None]
  - THROMBOCYTOPENIA [None]
  - UPPER RESPIRATORY TRACT INFECTION [None]
  - VOMITING [None]
